FAERS Safety Report 6589084-2 (Version None)
Quarter: 2010Q1

REPORT INFORMATION
  Report Type: 
  Country: None (occurrence: None)
  Receive Date: 20100218
  Receipt Date: 20100211
  Transmission Date: 20100710
  Serious: Yes (Other)
  Sender: FDA-Public Use
  Company Number: GXKR2010FR01753

PATIENT
  Age: 43 Year
  Sex: Male

DRUGS (4)
  1. CISPLATIN [Suspect]
     Indication: THYMIC CANCER METASTATIC
     Dosage: 6 CYCLES
     Dates: start: 20080201
  2. DOCETAXEL (NGX) [Suspect]
     Indication: THYMIC CANCER METASTATIC
     Dosage: 6 CYCLES
     Dates: start: 20080201
  3. FLUOROURACIL [Suspect]
     Indication: THYMIC CANCER METASTATIC
     Dosage: 6 CYCLES
     Dates: start: 20080201
  4. AFLIBERCEPT [Suspect]
     Indication: THYMIC CANCER METASTATIC

REACTIONS (6)
  - CENTRAL VENOUS CATHETER REMOVAL [None]
  - IMPAIRED HEALING [None]
  - INFLAMMATION [None]
  - PAIN [None]
  - SUTURE INSERTION [None]
  - WOUND DEHISCENCE [None]
